FAERS Safety Report 8327543-2 (Version None)
Quarter: 2012Q2

REPORT INFORMATION
  Report Type: 
  Country: None (occurrence: None)
  Receive Date: 20120502
  Receipt Date: 20120418
  Transmission Date: 20120825
  Serious: No
  Sender: FDA-Public Use
  Company Number: US-BAYER-2012-041567

PATIENT
  Age: 72 Year
  Sex: Female

DRUGS (2)
  1. ALKA-SELTZER ORIGINAL [Suspect]
     Indication: ABDOMINAL DISCOMFORT
  2. NAPROXEN SODIUM [Suspect]

REACTIONS (2)
  - HEADACHE [None]
  - DRUG INEFFECTIVE [None]
